FAERS Safety Report 4361214-2 (Version None)
Quarter: 2004Q2

REPORT INFORMATION
  Report Type: 
  Country: None (occurrence: None)
  Receive Date: 20040514
  Receipt Date: 20030512
  Transmission Date: 20050107
  Serious: Yes (Other)
  Sender: FDA-Public Use
  Company Number: 03-147-0084

PATIENT
  Sex: Male

DRUGS (1)
  1. MITOMYCIN [Suspect]
     Dates: start: 20030421

REACTIONS (2)
  - RASH PRURITIC [None]
  - URTICARIA CONTACT [None]
